FAERS Safety Report 18193359 (Version 1)
Quarter: 2020Q3

REPORT INFORMATION
  Report Type: Spontaneous
  Country: CA (occurrence: CA)
  Receive Date: 20200825
  Receipt Date: 20200825
  Transmission Date: 20201103
  Serious: Yes (Hospitalization, Other)
  Sender: FDA-Public Use
  Company Number: CA-ASTRAZENECA-2020SF04572

PATIENT
  Age: 52 Year
  Sex: Female

DRUGS (26)
  1. CLONAZEPAM. [Suspect]
     Active Substance: CLONAZEPAM
     Indication: HYPOMANIA
     Route: 048
  2. TEGRETOL [Suspect]
     Active Substance: CARBAMAZEPINE
     Indication: HYPOMANIA
     Route: 065
  3. DIAZEPAM. [Suspect]
     Active Substance: DIAZEPAM
     Indication: DEPRESSION
     Dosage: 2750.0MG UNKNOWN
     Route: 048
  4. TRAZODONE [Suspect]
     Active Substance: TRAZODONE HYDROCHLORIDE
     Indication: DEPRESSION
     Route: 048
  5. 3TC [Concomitant]
     Active Substance: LAMIVUDINE
  6. ABACAVIR. [Concomitant]
     Active Substance: ABACAVIR
  7. ATOVAQUONEW/PROGUANIL [Concomitant]
  8. LITHIUM. [Concomitant]
     Active Substance: LITHIUM
  9. RISPERIDONE. [Suspect]
     Active Substance: RISPERIDONE
     Indication: PSYCHOTIC DISORDER
     Route: 048
  10. OLANZAPINE. [Suspect]
     Active Substance: OLANZAPINE
     Indication: PSYCHOTIC DISORDER
     Route: 048
  11. BISACODYL. [Concomitant]
     Active Substance: BISACODYL
  12. DIAZEPAM. [Suspect]
     Active Substance: DIAZEPAM
     Indication: DEPRESSION
     Dosage: 1500.0MG UNKNOWN
     Route: 048
  13. BENADRYL [Concomitant]
     Active Substance: DIPHENHYDRAMINE HYDROCHLORIDE
  14. IMODIUM [Concomitant]
     Active Substance: LOPERAMIDE HYDROCHLORIDE
  15. KALETRA [Concomitant]
     Active Substance: LOPINAVIR\RITONAVIR
  16. MULTIVITAMINE(S) [Concomitant]
     Active Substance: VITAMINS
  17. OLANZAPINE. [Suspect]
     Active Substance: OLANZAPINE
     Indication: PSYCHOTIC DISORDER
     Route: 048
  18. QUETIAPINE. [Suspect]
     Active Substance: QUETIAPINE
     Indication: PSYCHOTIC DISORDER
     Route: 048
  19. PROCYCLIDINE HCL [Suspect]
     Active Substance: PROCYCLIDINE HYDROCHLORIDE
     Indication: PROPHYLAXIS
     Route: 048
  20. LACTULOSE SYRUP [Concomitant]
     Active Substance: LACTULOSE
  21. NYSTATIN. [Concomitant]
     Active Substance: NYSTATIN
  22. T?20 [Concomitant]
     Active Substance: ENFUVIRTIDE
  23. DIAZEPAM. [Suspect]
     Active Substance: DIAZEPAM
     Indication: DEPRESSION
     Dosage: 250.0MG UNKNOWN
     Route: 048
  24. ACETAMINOPHEN. [Concomitant]
     Active Substance: ACETAMINOPHEN
     Indication: PAIN IN EXTREMITY
     Route: 048
  25. CALCIUM CARBONATE. [Concomitant]
     Active Substance: CALCIUM CARBONATE
  26. CHLORAL HYDRATE [Concomitant]
     Active Substance: CHLORAL HYDRATE

REACTIONS (12)
  - Vomiting [Unknown]
  - Blood bilirubin increased [Unknown]
  - Hypomania [Unknown]
  - Schizophrenia [Unknown]
  - Cholelithiasis [Unknown]
  - Condition aggravated [Unknown]
  - Pneumonia [Unknown]
  - Hepatotoxicity [Unknown]
  - Hepatic enzyme increased [Unknown]
  - Jaundice cholestatic [Unknown]
  - Nausea [Unknown]
  - Psychotic disorder [Unknown]
